FAERS Safety Report 6959617-2 (Version None)
Quarter: 2010Q3

REPORT INFORMATION
  Report Type: 
  Country: None (occurrence: None)
  Receive Date: 20100823
  Receipt Date: 20100714
  Transmission Date: 20110219
  Serious: No
  Sender: FDA-Public Use
  Company Number: 8047306

PATIENT
  Sex: Male

DRUGS (1)
  1. CIMZIA [Suspect]
     Indication: CROHN'S DISEASE
     Dosage: (400 MG SUBCUTANEOUS)
     Route: 058
     Dates: start: 20081211

REACTIONS (7)
  - FISTULA [None]
  - FISTULA DISCHARGE [None]
  - HAEMORRHAGE [None]
  - HERNIA [None]
  - INJECTION SITE HYPERSENSITIVITY [None]
  - LARGE INTESTINAL ULCER [None]
  - PAIN [None]
